FAERS Safety Report 10272656 (Version 1)
Quarter: 2014Q3

REPORT INFORMATION
  Report Type: Report from Study
  Country: US (occurrence: US)
  Receive Date: 20140702
  Receipt Date: 20140702
  Transmission Date: 20150326
  Serious: Yes (Other)
  Sender: FDA-Public Use
  Company Number: PHEH2014US013026

PATIENT
  Sex: Female

DRUGS (1)
  1. TEGRETOL [Suspect]
     Active Substance: CARBAMAZEPINE
     Dosage: (1.5 TO 2 TABLETS DAILY) (200 MG)
     Route: 048

REACTIONS (19)
  - Bipolar disorder [Unknown]
  - Cataract [Unknown]
  - Exostosis [Unknown]
  - Irritable bowel syndrome [Unknown]
  - Neuropathy peripheral [Unknown]
  - Arthritis [Unknown]
  - Renal disorder [Unknown]
  - Thyroid disorder [Unknown]
  - Scoliosis [Unknown]
  - Cystitis interstitial [Unknown]
  - Diverticulitis [Unknown]
  - Fibromyalgia [Unknown]
  - B-cell lymphoma [Unknown]
  - Urinary tract infection [Unknown]
  - Intervertebral disc protrusion [Unknown]
  - Adrenal disorder [Unknown]
  - Hypertension [Unknown]
  - Diabetes mellitus [Unknown]
  - Reflux laryngitis [Unknown]
